FAERS Safety Report 8803682 (Version 2)
Quarter: 2012Q4

REPORT INFORMATION
  Report Type: 
  Country: DE (occurrence: DE)
  Receive Date: 20120924
  Receipt Date: 20120928
  Transmission Date: 20130627
  Serious: Yes (Hospitalization)
  Sender: FDA-Public Use
  Company Number: DE-AMGEN-DEUSP2012059821

PATIENT
  Sex: Male

DRUGS (9)
  1. XGEVA [Suspect]
     Indication: BACK PAIN
     Dosage: UNK
     Dates: start: 20120913, end: 20120913
  2. XGEVA [Suspect]
     Indication: METASTASES TO BONE
  3. XGEVA [Suspect]
     Indication: PROSTATE CANCER
  4. TOREM                              /01036501/ [Concomitant]
     Indication: RENAL FAILURE CHRONIC
     Dosage: UNK
     Dates: start: 20071023
  5. ENALAPRIL [Concomitant]
     Indication: HYPERTENSION
     Dosage: UNK
     Dates: start: 20080821
  6. CONCOR [Concomitant]
     Indication: HYPERTENSION
     Dosage: UNK
     Dates: start: 20071016
  7. CALCIUM ACETATE [Concomitant]
     Indication: HYPERPHOSPHATAEMIA
     Dosage: UNK
     Dates: start: 20071016
  8. BONDIOL [Concomitant]
     Indication: RENAL FAILURE CHRONIC
     Dosage: UNK
     Dates: start: 20090126
  9. VITAMIN D /00107901/ [Concomitant]
     Indication: HYPOCALCAEMIA

REACTIONS (4)
  - Myoclonus [Recovered/Resolved]
  - Tetany [Recovered/Resolved]
  - Hypocalcaemia [Not Recovered/Not Resolved]
  - Muscle spasms [Unknown]
